FAERS Safety Report 5824721-9 (Version None)
Quarter: 2008Q3

REPORT INFORMATION
  Report Type: 
  Country: None (occurrence: None)
  Receive Date: 20080722
  Receipt Date: 20080711
  Transmission Date: 20090109
  Serious: No
  Sender: FDA-Public Use
  Company Number: 20085375

PATIENT
  Sex: Female

DRUGS (1)
  1. LIORESAL [Suspect]
     Indication: MUSCLE SPASTICITY
     Dosage: MCG, DAILY, INTRATHECAL
     Route: 037

REACTIONS (3)
  - BRADYCARDIA [None]
  - HYPOTENSION [None]
  - SLEEP APNOEA SYNDROME [None]
